FAERS Safety Report 4398230-0 (Version None)
Quarter: 2004Q3

REPORT INFORMATION
  Report Type: 
  Country: None (occurrence: None)
  Receive Date: 20040715
  Receipt Date: 20040712
  Transmission Date: 20050211
  Serious: Yes (Hospitalization)
  Sender: FDA-Public Use
  Company Number: 200412691FR

PATIENT
  Age: 74 Year
  Sex: Female

DRUGS (3)
  1. LASILIX RETARD [Suspect]
     Indication: ESSENTIAL HYPERTENSION
     Route: 048
     Dates: end: 20031003
  2. COKENZEN [Suspect]
     Indication: ESSENTIAL HYPERTENSION
     Route: 048
     Dates: end: 20031003
  3. DIGOXIN [Concomitant]
     Route: 048
     Dates: end: 20031005

REACTIONS (4)
  - BLOOD PRESSURE SYSTOLIC INCREASED [None]
  - CONDITION AGGRAVATED [None]
  - OVERDOSE [None]
  - RENAL FAILURE CHRONIC [None]
